FAERS Safety Report 17219063 (Version 1)
Quarter: 2019Q4

REPORT INFORMATION
  Report Type: Spontaneous
  Country: US (occurrence: US)
  Receive Date: 20191231
  Receipt Date: 20191231
  Transmission Date: 20200122
  Serious: Yes (Other)
  Sender: FDA-Public Use
  Company Number: US-SIGMAPHARM LABORATORIES, LLC-2019SIG00143

PATIENT
  Age: 86 Year
  Sex: Female

DRUGS (3)
  1. LEXISCAN [Suspect]
     Active Substance: REGADENOSON
     Indication: CARDIAC STRESS TEST
     Dosage: 0.4 MG, ONCE (OVER 30 SECONDS)
     Route: 042
  2. NITROGLYCERIN. [Suspect]
     Active Substance: NITROGLYCERIN
     Indication: CHEST PAIN
     Route: 060
  3. TC-99 M TETROFOSMIN [Concomitant]
     Dosage: 30 MCI, ONCE
     Route: 065

REACTIONS (2)
  - Hypotension [Recovered/Resolved]
  - Myocardial ischaemia [Recovered/Resolved]
